FAERS Safety Report 25844031 (Version 1)
Quarter: 2025Q3

REPORT INFORMATION
  Report Type: Report from Study
  Country: US (occurrence: US)
  Receive Date: 20250925
  Receipt Date: 20250925
  Transmission Date: 20251021
  Serious: Yes (Other)
  Sender: CHIESI
  Company Number: US-CHIESI-2025CHF05869

PATIENT
  Sex: Male
  Weight: 38.101 kg

DRUGS (1)
  1. BIRCH BARK\HERBALS [Suspect]
     Active Substance: BIRCH BARK\HERBALS
     Indication: Epidermolysis bullosa
     Route: 061
     Dates: start: 20241204

REACTIONS (4)
  - Wound infection staphylococcal [Recovered/Resolved]
  - Product administration interrupted [Recovered/Resolved]
  - Skin discharge [Recovering/Resolving]
  - Skin discharge [Recovering/Resolving]
